FAERS Safety Report 10211192 (Version 1)
Quarter: 2014Q2

REPORT INFORMATION
  Report Type: Report from Study
  Country: US (occurrence: US)
  Receive Date: 20140602
  Receipt Date: 20140602
  Transmission Date: 20141212
  Serious: No
  Sender: FDA-Public Use
  Company Number: US-ABBVIE-13P-163-1133541-00

PATIENT
  Age: 36 Year
  Sex: Male
  Weight: 58.11 kg

DRUGS (21)
  1. MARINOL [Suspect]
     Indication: INCREASED APPETITE
     Route: 048
     Dates: start: 201307, end: 201307
  2. MARINOL [Suspect]
     Indication: PAIN
  3. LORAZEPAM [Concomitant]
     Indication: ANXIETY
  4. LORAZEPAM [Concomitant]
     Indication: PAIN
  5. GABAPENTIN [Concomitant]
     Indication: PAIN
  6. GABAPENTIN [Concomitant]
     Indication: NEUROPATHY PERIPHERAL
  7. MYSORTIC [Concomitant]
     Indication: PROPHYLAXIS AGAINST TRANSPLANT REJECTION
  8. TAMSULOSIN [Concomitant]
     Indication: BLADDER DISORDER
  9. TAMSULOSIN [Concomitant]
     Indication: DYSURIA
  10. SEROQUEL [Concomitant]
     Indication: MOOD SWINGS
  11. RAPAMUNE [Concomitant]
     Indication: PROPHYLAXIS AGAINST TRANSPLANT REJECTION
  12. METOPROLOL [Concomitant]
     Indication: HYPERTENSION
  13. FUROSEMIDE [Concomitant]
     Indication: OEDEMA PERIPHERAL
  14. FINEDIAC [Concomitant]
     Indication: HYPERTENSION
  15. PANTOPRAZOLE [Concomitant]
     Indication: GASTRIC ULCER
  16. SEROQUEL XR [Concomitant]
     Indication: MOOD SWINGS
  17. PREDNISONE [Concomitant]
     Indication: PROPHYLAXIS AGAINST TRANSPLANT REJECTION
  18. VALIUM [Concomitant]
     Indication: PAIN
  19. VALIUM [Concomitant]
     Indication: PANIC ATTACK
  20. AMBIEN [Concomitant]
     Indication: INSOMNIA
  21. HUMALOG [Concomitant]
     Indication: DIABETES MELLITUS

REACTIONS (5)
  - Hypophagia [Not Recovered/Not Resolved]
  - Weight decreased [Not Recovered/Not Resolved]
  - Nausea [Not Recovered/Not Resolved]
  - Drug dose omission [Unknown]
  - Off label use [Unknown]
